FAERS Safety Report 8747439 (Version 2)
Quarter: 2012Q4

REPORT INFORMATION
  Report Type: Report from Study
  Country: US (occurrence: US)
  Receive Date: 20120827
  Receipt Date: 20121219
  Transmission Date: 20130627
  Serious: Yes (Hospitalization)
  Sender: FDA-Public Use
  Company Number: US-SHIRE-ALL1-2012-03882

PATIENT
  Age: 36 Year
  Sex: Male
  Weight: 64.4 kg

DRUGS (3)
  1. LISDEXAMFETAMINE DIMESYLATE [Suspect]
     Indication: DEPRESSION
     Dosage: 50 mg, 1x/day:qd
     Dates: start: 20120706, end: 20120812
  2. LISDEXAMFETAMINE DIMESYLATE [Suspect]
     Dosage: UNK, 1x/day:qd
     Dates: start: 20120628
  3. DULOXETINE HYDROCHLORIDE [Suspect]
     Indication: DEPRESSION
     Dosage: UNK UNK, 1x/day:qd
     Route: 048
     Dates: start: 20120228, end: 20120812

REACTIONS (2)
  - Suicidal ideation [Recovered/Resolved]
  - Hallucination, auditory [Recovered/Resolved]
